FAERS Safety Report 4467805-2 (Version None)
Quarter: 2004Q4

REPORT INFORMATION
  Report Type: 
  Country: None (occurrence: None)
  Receive Date: 20041001
  Receipt Date: 20040915
  Transmission Date: 20050328
  Serious: Yes (Hospitalization)
  Sender: FDA-Public Use
  Company Number: 2004AP04869

PATIENT
  Age: 40 Year
  Sex: Female

DRUGS (7)
  1. ZOLADEX [Suspect]
     Indication: BREAST CANCER
     Dosage: 3.6 MG Q4WK SQ
     Dates: start: 20040812, end: 20040902
  2. NOLVADEX [Suspect]
     Indication: BREAST CANCER
     Dosage: 20 MG DAILY PO
     Route: 048
     Dates: start: 20040812, end: 20040902
  3. RIZABEN [Concomitant]
  4. RELIFEN [Concomitant]
  5. CYTOTEC [Concomitant]
  6. NO MATCH [Concomitant]
  7. MEIACT [Concomitant]

REACTIONS (5)
  - EOSINOPHIL COUNT INCREASED [None]
  - HEPATITIS [None]
  - MALAISE [None]
  - PYREXIA [None]
  - UPPER RESPIRATORY TRACT INFLAMMATION [None]
